FAERS Safety Report 5102853-0 (Version None)
Quarter: 2006Q3

REPORT INFORMATION
  Report Type: 
  Country: None (occurrence: None)
  Receive Date: 20060907
  Receipt Date: 20060824
  Transmission Date: 20061208
  Serious: Yes (Disabling)
  Sender: FDA-Public Use
  Company Number: FABR-11616

PATIENT
  Age: 49 Year
  Sex: Female
  Weight: 49 kg

DRUGS (11)
  1. FABRAZYME [Suspect]
     Indication: FABRY'S DISEASE
     Dosage: 50 MG Q2WKS IV
     Route: 042
     Dates: start: 20060629, end: 20060713
  2. ACETAMINOPHEN [Concomitant]
  3. HYDROXYZINE PAMOATE [Concomitant]
  4. VALSARTAN [Concomitant]
  5. TACROLIMUS HYDRATE [Concomitant]
  6. PREDNISOLONE [Concomitant]
  7. TICLOPIDINE HYDROCHLORIDE [Concomitant]
  8. FAMOTIDINE [Concomitant]
  9. VALPROATE SODIUM [Concomitant]
  10. ASCORBIC ACID [Concomitant]
  11. SENNA LEAF/SENNA POD [Concomitant]

REACTIONS (7)
  - BLOOD CREATININE INCREASED [None]
  - BLOOD UREA INCREASED [None]
  - DEATH OF PARENT [None]
  - DECREASED APPETITE [None]
  - DEHYDRATION [None]
  - DEPRESSION [None]
  - MALAISE [None]
